FAERS Safety Report 8121069-7 (Version None)
Quarter: 2012Q1

REPORT INFORMATION
  Report Type: 
  Country: None (occurrence: None)
  Receive Date: 20120203
  Receipt Date: 20120117
  Transmission Date: 20120608
  Serious: Yes (Hospitalization, Other)
  Sender: FDA-Public Use
  Company Number: 20110309

PATIENT
  Age: 27 Year
  Sex: Female
  Weight: 53 kg

DRUGS (5)
  1. SYMBICORT [Concomitant]
  2. VENOFER [Suspect]
     Indication: IRON DEFICIENCY ANAEMIA
     Dosage: 200 MG OVER 1 HOUR
     Route: 041
     Dates: start: 20101206, end: 20101206
  3. BIRTH CONTROL PILL [Concomitant]
  4. VENOFER [Suspect]
     Indication: IRON DEFICIENCY ANAEMIA
     Dates: start: 20101101, end: 20101101
  5. AERIUS (DESLORATIADINE) [Concomitant]

REACTIONS (8)
  - FEELING HOT [None]
  - WHITE BLOOD CELL COUNT INCREASED [None]
  - URTICARIA [None]
  - ERYTHEMA [None]
  - INFUSION SITE EXTRAVASATION [None]
  - C-REACTIVE PROTEIN INCREASED [None]
  - FIBRIN D DIMER INCREASED [None]
  - PRURITUS [None]
